FAERS Safety Report 17711619 (Version 2)
Quarter: 2020Q2

REPORT INFORMATION
  Report Type: Spontaneous
  Country: FR (occurrence: FR)
  Receive Date: 20200427
  Receipt Date: 20200507
  Transmission Date: 20200714
  Serious: Yes (Other)
  Sender: FDA-Public Use
  Company Number: FR-PFIZER INC-2020166374

PATIENT
  Age: 36 Year
  Sex: Female
  Weight: 50 kg

DRUGS (1)
  1. METHOTREXATE SODIUM. [Suspect]
     Active Substance: METHOTREXATE SODIUM
     Indication: ALOPECIA UNIVERSALIS
     Dosage: 20 MG, 1X/DAY
     Route: 048
     Dates: start: 20190514

REACTIONS (4)
  - Hallucination [Recovering/Resolving]
  - Product use in unapproved indication [Unknown]
  - Nightmare [Recovering/Resolving]
  - Off label use [Unknown]

NARRATIVE: CASE EVENT DATE: 20190514
